FAERS Safety Report 10090365 (Version 2)
Quarter: 2014Q2

REPORT INFORMATION
  Report Type: Spontaneous
  Country: US (occurrence: US)
  Receive Date: 20140421
  Receipt Date: 20140520
  Transmission Date: 20141212
  Serious: No
  Sender: FDA-Public Use
  Company Number: US-PFIZER INC-2014109265

PATIENT
  Age: 74 Year
  Sex: Female
  Weight: 81.63 kg

DRUGS (4)
  1. XELJANZ [Suspect]
     Indication: RHEUMATOID ARTHRITIS
     Dosage: 5 MG, 2X/DAY
     Route: 048
     Dates: start: 20140317, end: 20140407
  2. XELJANZ [Suspect]
     Dosage: 50 MG, 2X/DAY
     Route: 048
     Dates: start: 201403
  3. FUROSEMIDE [Concomitant]
     Indication: BLOOD PRESSURE ABNORMAL
     Dosage: UNK
  4. METHOTREXATE [Concomitant]
     Dosage: 17.5 MG, WEEKLY

REACTIONS (3)
  - Herpes zoster [Not Recovered/Not Resolved]
  - Hypoaesthesia [Unknown]
  - Rash erythematous [Unknown]
